FAERS Safety Report 8900730 (Version 1)
Quarter: 2012Q4

REPORT INFORMATION
  Report Type: 
  Country: US (occurrence: US)
  Receive Date: 20121109
  Receipt Date: 20121109
  Transmission Date: 20130627
  Serious: No
  Sender: FDA-Public Use
  Company Number: US-PFIZER INC-2012276484

PATIENT
  Age: 63 Year
  Sex: Male
  Weight: 79.37 kg

DRUGS (4)
  1. CELEBREX [Suspect]
     Indication: KNEE INJURY
     Dosage: 200 mg, daily
     Dates: start: 20121101, end: 20121102
  2. NORTRIPTYLINE [Concomitant]
     Indication: DEPRESSION
     Dosage: 25 mg, daily
  3. DOXAZOSIN [Concomitant]
     Indication: ENLARGED PROSTATE
     Dosage: 1 mg, daily
  4. NEXIUM [Concomitant]
     Indication: ACID REFLUX (ESOPHAGEAL)
     Dosage: 40 mg, daily

REACTIONS (2)
  - Chest pain [Recovered/Resolved]
  - Fatigue [Recovering/Resolving]
